FAERS Safety Report 10069731 (Version 1)
Quarter: 2014Q2

REPORT INFORMATION
  Report Type: Spontaneous
  Country: US (occurrence: None)
  Receive Date: 20140409
  Receipt Date: 20140409
  Transmission Date: 20141212
  Serious: Yes (Disabling, Other)
  Sender: FDA-Public Use
  Company Number: None

PATIENT
  Age: 59 Year
  Sex: Female
  Weight: 48.08 kg

DRUGS (1)
  1. RECLAST [Suspect]
     Indication: OSTEOPOROSIS
     Dosage: UNKNOWN AS NEEDED GIVEN INTO/UNDER THE SKIN
     Dates: start: 20121205, end: 20131209

REACTIONS (5)
  - Alopecia [None]
  - Arthralgia [None]
  - Myalgia [None]
  - Tooth loss [None]
  - Toothache [None]
